FAERS Safety Report 4831203-X (Version None)
Quarter: 2005Q4

REPORT INFORMATION
  Report Type: 
  Country: None (occurrence: None)
  Receive Date: 20051118
  Receipt Date: 20051020
  Transmission Date: 20060501
  Serious: Yes (Hospitalization)
  Sender: FDA-Public Use
  Company Number: 2005AP05443

PATIENT
  Age: 23490 Day
  Sex: Male

DRUGS (7)
  1. SEROQUEL [Suspect]
     Indication: SCHIZOPHRENIA
     Route: 048
     Dates: start: 20050705, end: 20050706
  2. SEROQUEL [Suspect]
     Route: 048
     Dates: start: 20050707, end: 20050708
  3. DANTRIUM [Suspect]
     Indication: BLOOD CREATINE PHOSPHOKINASE INCREASED
     Route: 048
     Dates: start: 20050628, end: 20050704
  4. MAGMITT [Concomitant]
     Indication: CONSTIPATION
     Route: 048
     Dates: start: 20050617, end: 20050707
  5. SILECE [Concomitant]
     Indication: INSOMNIA
     Route: 048
     Dates: start: 20050614, end: 20050707
  6. RISPERDAL [Concomitant]
     Indication: HALLUCINATION
     Dates: start: 20050622, end: 20050623
  7. RISPERDAL [Concomitant]
     Dates: start: 20050624, end: 20050628

REACTIONS (7)
  - ALANINE AMINOTRANSFERASE INCREASED [None]
  - ASPARTATE AMINOTRANSFERASE INCREASED [None]
  - BLOOD ALKALINE PHOSPHATASE INCREASED [None]
  - GAMMA-GLUTAMYLTRANSFERASE INCREASED [None]
  - HEPATIC FUNCTION ABNORMAL [None]
  - JAUNDICE [None]
  - LIVER DISORDER [None]
